FAERS Safety Report 9173450 (Version 3)
Quarter: 2014Q3

REPORT INFORMATION
  Report Type: Spontaneous
  Country: IN (occurrence: None)
  Receive Date: 20130313
  Receipt Date: 20140730
  Transmission Date: 20150326
  Serious: Yes (Other)
  Sender: FDA-Public Use
  Company Number: AUR-APL-2013-02110

PATIENT
  Age: 16 Month
  Sex: Female
  Weight: 7.1 kg

DRUGS (2)
  1. DIVALPROEX SODIUM DELAYED-RELEASE [Suspect]
     Active Substance: DIVALPROEX SODIUM
     Indication: EPILEPSY
  2. TOPIRAMATE. [Suspect]
     Active Substance: TOPIRAMATE
     Indication: EPILEPSY

REACTIONS (14)
  - Skin odour abnormal [None]
  - Metabolic disorder [None]
  - Amino acid level increased [None]
  - Somnolence [None]
  - Lactate pyruvate ratio increased [None]
  - Convulsion [None]
  - Blood lactic acid increased [None]
  - Dyspnoea [None]
  - Ammonia increased [None]
  - Dihydropyrimidine dehydrogenase deficiency [None]
  - Drug interaction [None]
  - Depressed level of consciousness [None]
  - Blood pyruvic acid increased [None]
  - Lethargy [None]
